FAERS Safety Report 10879475 (Version 1)
Quarter: 2015Q1

REPORT INFORMATION
  Report Type: Spontaneous
  Country: RO (occurrence: RO)
  Receive Date: 20150302
  Receipt Date: 20150302
  Transmission Date: 20150721
  Serious: Yes (Other)
  Sender: FDA-Public Use
  Company Number: RO-BAYER-2015-026504

PATIENT
  Sex: Female

DRUGS (1)
  1. ACETYLSALICYLIC ACID({=100 MG) [Suspect]
     Active Substance: ASPIRIN
     Indication: THROMBOSIS PROPHYLAXIS

REACTIONS (3)
  - Foetal placental thrombosis [None]
  - Foetal death [None]
  - Maternal exposure during pregnancy [None]
